FAERS Safety Report 23281766 (Version 2)
Quarter: 2024Q1

REPORT INFORMATION
  Report Type: Report from Study
  Country: AT (occurrence: AT)
  Receive Date: 20231211
  Receipt Date: 20240115
  Transmission Date: 20240410
  Serious: Yes (Other)
  Sender: FDA-Public Use
  Company Number: AT-AMGEN-AUTNI2023219296

PATIENT
  Age: 62 Year
  Sex: Male
  Weight: 75 kg

DRUGS (64)
  1. PANITUMUMAB [Suspect]
     Active Substance: PANITUMUMAB
     Indication: Colorectal cancer metastatic
     Dosage: 450 MILLIGRAM
     Route: 042
     Dates: start: 20201021
  2. PANITUMUMAB [Suspect]
     Active Substance: PANITUMUMAB
     Dosage: 444 MILLIGRAM
     Route: 042
     Dates: start: 20200715
  3. PANITUMUMAB [Suspect]
     Active Substance: PANITUMUMAB
     Dosage: 450 MILLIGRAM
     Route: 042
     Dates: start: 20200806
  4. PANITUMUMAB [Suspect]
     Active Substance: PANITUMUMAB
     Dosage: 462 MILLIGRAM
     Route: 042
     Dates: start: 20200909
  5. PANITUMUMAB [Suspect]
     Active Substance: PANITUMUMAB
     Dosage: 450 MILLIGRAM
     Route: 042
     Dates: start: 20201021
  6. PANITUMUMAB [Suspect]
     Active Substance: PANITUMUMAB
     Dosage: 456 MILLIGRAM
     Route: 042
     Dates: start: 20201201
  7. PANITUMUMAB [Suspect]
     Active Substance: PANITUMUMAB
     Dosage: 450 MILLIGRAM
     Route: 042
     Dates: start: 20201215
  8. PANITUMUMAB [Suspect]
     Active Substance: PANITUMUMAB
     Dosage: 444 MILLIGRAM
     Route: 042
     Dates: start: 20211122
  9. PANITUMUMAB [Suspect]
     Active Substance: PANITUMUMAB
     Dosage: 462 MILLIGRAM
     Route: 042
     Dates: start: 20211206
  10. PANITUMUMAB [Suspect]
     Active Substance: PANITUMUMAB
     Dosage: 456 MILLIGRAM
     Route: 042
     Dates: start: 20220103
  11. PANITUMUMAB [Suspect]
     Active Substance: PANITUMUMAB
     Dosage: 462 MILLIGRAM
     Route: 042
     Dates: start: 20220117
  12. PANITUMUMAB [Suspect]
     Active Substance: PANITUMUMAB
     Dosage: 480 MILLIGRAM
     Route: 042
     Dates: start: 20230523
  13. PANITUMUMAB [Suspect]
     Active Substance: PANITUMUMAB
     Dosage: 468 MILLIGRAM
     Route: 042
     Dates: start: 20230606
  14. PANITUMUMAB [Suspect]
     Active Substance: PANITUMUMAB
     Dosage: 462 MILLIGRAM
     Route: 042
     Dates: start: 20230620
  15. PANITUMUMAB [Suspect]
     Active Substance: PANITUMUMAB
     Dosage: 467 MILLIGRAM
     Route: 042
     Dates: start: 20230704
  16. PANITUMUMAB [Suspect]
     Active Substance: PANITUMUMAB
     Dosage: 468 MILLIGRAM
     Route: 042
     Dates: start: 20230821
  17. PANITUMUMAB [Suspect]
     Active Substance: PANITUMUMAB
     Dosage: 471 MILLIGRAM
     Route: 042
     Dates: start: 20231003
  18. PANITUMUMAB [Suspect]
     Active Substance: PANITUMUMAB
     Dosage: 475 MILLIGRAM
     Route: 042
     Dates: start: 20231017
  19. PANITUMUMAB [Suspect]
     Active Substance: PANITUMUMAB
     Dosage: 474 MILLIGRAM
     Route: 042
     Dates: start: 20231102
  20. LEUCOVORIN [Suspect]
     Active Substance: LEUCOVORIN\LEUCOVORIN CALCIUM
     Indication: Colorectal cancer metastatic
     Dosage: 385 MILLIGRAM
     Route: 065
     Dates: start: 20200616
  21. LEUCOVORIN [Suspect]
     Active Substance: LEUCOVORIN\LEUCOVORIN CALCIUM
     Dosage: 383 MILLIGRAM
     Route: 065
     Dates: start: 20200715
  22. LEUCOVORIN [Suspect]
     Active Substance: LEUCOVORIN\LEUCOVORIN CALCIUM
     Dosage: 385 MILLIGRAM
     Route: 065
     Dates: start: 20200806
  23. LEUCOVORIN [Suspect]
     Active Substance: LEUCOVORIN\LEUCOVORIN CALCIUM
     Dosage: 390 MILLIGRAM
     Route: 065
     Dates: start: 20200909
  24. LEUCOVORIN [Suspect]
     Active Substance: LEUCOVORIN\LEUCOVORIN CALCIUM
     Dosage: 385 MILLIGRAM
     Route: 065
     Dates: start: 20201021
  25. LEUCOVORIN [Suspect]
     Active Substance: LEUCOVORIN\LEUCOVORIN CALCIUM
     Dosage: 388 MILLIGRAM
     Route: 065
     Dates: start: 20201201
  26. LEUCOVORIN [Suspect]
     Active Substance: LEUCOVORIN\LEUCOVORIN CALCIUM
     Dosage: 385 MILLIGRAM
     Route: 065
     Dates: start: 20201215
  27. LEUCOVORIN [Suspect]
     Active Substance: LEUCOVORIN\LEUCOVORIN CALCIUM
     Dosage: 383 MILLIGRAM
     Route: 065
     Dates: start: 20211122
  28. LEUCOVORIN [Suspect]
     Active Substance: LEUCOVORIN\LEUCOVORIN CALCIUM
     Dosage: 390 MILLIGRAM
     Route: 065
     Dates: start: 20211206
  29. LEUCOVORIN [Suspect]
     Active Substance: LEUCOVORIN\LEUCOVORIN CALCIUM
     Dosage: 388 MILLIGRAM
     Route: 065
     Dates: start: 20211220
  30. LEUCOVORIN [Suspect]
     Active Substance: LEUCOVORIN\LEUCOVORIN CALCIUM
     Dosage: 390 MILLIGRAM
     Route: 065
     Dates: start: 20220117
  31. FLUOROURACIL [Suspect]
     Active Substance: FLUOROURACIL
     Indication: Colorectal cancer metastatic
     Dosage: 771 MILLIGRAM
     Route: 042
     Dates: start: 20200616
  32. FLUOROURACIL [Suspect]
     Active Substance: FLUOROURACIL
     Dosage: 770 MILLIGRAM
     Route: 042
     Dates: start: 20200701
  33. FLUOROURACIL [Suspect]
     Active Substance: FLUOROURACIL
     Dosage: 766 MILLIGRAM
     Route: 042
     Dates: start: 20200715
  34. FLUOROURACIL [Suspect]
     Active Substance: FLUOROURACIL
     Dosage: 771 MILLIGRAM
     Route: 042
     Dates: start: 20200806
  35. FLUOROURACIL [Suspect]
     Active Substance: FLUOROURACIL
     Dosage: 1156 MILLIGRAM
     Route: 042
     Dates: start: 20200616
  36. FLUOROURACIL [Suspect]
     Active Substance: FLUOROURACIL
     Dosage: 1150 MILLIGRAM
     Route: 042
     Dates: start: 20200715
  37. FLUOROURACIL [Suspect]
     Active Substance: FLUOROURACIL
     Dosage: 1156 MILLIGRAM
     Route: 042
     Dates: start: 20200806
  38. FLUOROURACIL [Suspect]
     Active Substance: FLUOROURACIL
     Dosage: 1169 MILLIGRAM
     Route: 042
     Dates: start: 20200909
  39. FLUOROURACIL [Suspect]
     Active Substance: FLUOROURACIL
     Dosage: 1156 MILLIGRAM
     Route: 042
     Dates: start: 20201021
  40. FLUOROURACIL [Suspect]
     Active Substance: FLUOROURACIL
     Dosage: 1163 MILLIGRAM
     Route: 042
     Dates: start: 20201201
  41. FLUOROURACIL [Suspect]
     Active Substance: FLUOROURACIL
     Dosage: 1156 MILLIGRAM
     Route: 042
     Dates: start: 20201215
  42. FLUOROURACIL [Suspect]
     Active Substance: FLUOROURACIL
     Dosage: 1150 MILLIGRAM
     Route: 042
     Dates: start: 20211122
  43. FLUOROURACIL [Suspect]
     Active Substance: FLUOROURACIL
     Dosage: 1169 MILLIGRAM
     Route: 042
     Dates: start: 20211206
  44. FLUOROURACIL [Suspect]
     Active Substance: FLUOROURACIL
     Dosage: 1163 MILLIGRAM
     Route: 042
     Dates: start: 20220103
  45. FLUOROURACIL [Suspect]
     Active Substance: FLUOROURACIL
     Dosage: 1169 MILLIGRAM
     Route: 042
     Dates: start: 20220117
  46. OXALIPLATIN [Suspect]
     Active Substance: OXALIPLATIN
     Indication: Colorectal cancer metastatic
     Dosage: 164 MILLIGRAM
     Route: 065
     Dates: start: 20200616
  47. OXALIPLATIN [Suspect]
     Active Substance: OXALIPLATIN
     Dosage: 163 MILLIGRAM
     Route: 065
     Dates: start: 20200715
  48. OXALIPLATIN [Suspect]
     Active Substance: OXALIPLATIN
     Dosage: 164 MILLIGRAM
     Route: 065
     Dates: start: 20200806
  49. OXALIPLATIN [Suspect]
     Active Substance: OXALIPLATIN
     Dosage: 124 MILLIGRAM
     Route: 065
     Dates: start: 20200909
  50. OXALIPLATIN [Suspect]
     Active Substance: OXALIPLATIN
     Dosage: 123 MILLIGRAM
     Route: 065
     Dates: start: 20201021
  51. OXALIPLATIN [Suspect]
     Active Substance: OXALIPLATIN
     Dosage: 124 MILLIGRAM
     Route: 065
     Dates: start: 20201201
  52. OXALIPLATIN [Suspect]
     Active Substance: OXALIPLATIN
     Dosage: 123 MILLIGRAM
     Route: 065
     Dates: start: 20201215
  53. OXALIPLATIN [Suspect]
     Active Substance: OXALIPLATIN
     Dosage: 122 MILLIGRAM
     Route: 065
     Dates: start: 20211122
  54. OXALIPLATIN [Suspect]
     Active Substance: OXALIPLATIN
     Dosage: 124 MILLIGRAM
     Route: 065
     Dates: start: 20211206
  55. ASPIRIN [Concomitant]
     Active Substance: ASPIRIN
     Indication: Thrombosis prophylaxis
     Dosage: 100 MILLIGRAM, DAILY
     Route: 048
  56. AMLODIPINE BESYLATE [Concomitant]
     Active Substance: AMLODIPINE BESYLATE
     Indication: Hypertension
     Dosage: 10 MILLIGRAM
     Route: 048
  57. SYMBICORT [Concomitant]
     Active Substance: BUDESONIDE\FORMOTEROL FUMARATE DIHYDRATE
     Indication: Chronic obstructive pulmonary disease
     Dosage: 2 UNK, BID
     Dates: end: 20221023
  58. DEXAMETHASONE [Concomitant]
     Active Substance: DEXAMETHASONE
     Indication: Peptic ulcer
     Dosage: 4 MILLIGRAM
     Route: 048
     Dates: start: 20200616, end: 20231106
  59. DEXAMETHASONE [Concomitant]
     Active Substance: DEXAMETHASONE
     Indication: Prophylaxis
  60. GRANISETRON HYDROCHLORIDE [Concomitant]
     Active Substance: GRANISETRON HYDROCHLORIDE
     Indication: Nausea
     Dosage: 2 MILLIGRAM, AS NECESSARY
     Route: 048
     Dates: start: 20200616, end: 20221023
  61. Paspertin [Concomitant]
     Indication: Nausea
     Dosage: 10 MILLIGRAM AND 1 TABLET PRN
     Route: 048
     Dates: start: 20200616, end: 20231106
  62. LOPERAMIDE HYDROCHLORIDE [Concomitant]
     Active Substance: LOPERAMIDE HYDROCHLORIDE
     Indication: Diarrhoea
     Dosage: 2 MILLIGRAM, AS NECESSARY
     Route: 048
     Dates: start: 20200616, end: 20200909
  63. PANTOPRAZOLE SODIUM [Concomitant]
     Active Substance: PANTOPRAZOLE SODIUM
     Indication: Gastrooesophageal reflux disease
     Dosage: 40 MILLIGRAM, DAILY
     Route: 048
     Dates: start: 20221024
  64. MINOSTAD [Concomitant]
     Indication: Rash
     Dosage: 50 MILLIGRAM, BID
     Route: 048
     Dates: start: 20200617, end: 20231106

REACTIONS (1)
  - Polyneuropathy [Recovered/Resolved]

NARRATIVE: CASE EVENT DATE: 20211103
